FAERS Safety Report 9068423 (Version 1)
Quarter: 2013Q1

REPORT INFORMATION
  Report Type: Report from Study
  Country: US (occurrence: US)
  Receive Date: 20130206
  Receipt Date: 20130206
  Transmission Date: 20140127
  Serious: Yes (Other)
  Sender: FDA-Public Use
  Company Number: US-ABBOTT-13P-163-1043902-00

PATIENT
  Age: 20 Year
  Sex: Female

DRUGS (4)
  1. HUMIRA [Suspect]
     Indication: RHEUMATOID ARTHRITIS
     Dates: start: 201210, end: 201212
  2. HUMIRA [Suspect]
     Indication: PSORIASIS
     Dates: start: 20130113
  3. MOBIC [Concomitant]
     Indication: PRODUCT USED FOR UNKNOWN INDICATION
  4. TOPICALS [Concomitant]
     Indication: PSORIASIS

REACTIONS (3)
  - Femoroacetabular impingement [Recovering/Resolving]
  - Injection site pain [Unknown]
  - Inappropriate schedule of drug administration [Unknown]
